FAERS Safety Report 8474062-9 (Version None)
Quarter: 2012Q2

REPORT INFORMATION
  Report Type: 
  Country: None (occurrence: None)
  Receive Date: 20120628
  Receipt Date: 20110509
  Transmission Date: 20120825
  Serious: Yes (Other)
  Sender: FDA-Public Use
  Company Number: US-MYLANLABS-2011S1004159

PATIENT
  Age: 39 Year
  Sex: Male

DRUGS (7)
  1. COLACE [Concomitant]
  2. LIPITOR [Concomitant]
  3. CLONAZEPAM [Concomitant]
  4. CLOZAPINE [Suspect]
     Route: 048
     Dates: end: 20110222
  5. DEPAKOTE [Concomitant]
  6. SYNTHROID [Concomitant]
  7. INVEGA [Concomitant]

REACTIONS (1)
  - GRANULOCYTOPENIA [None]
